FAERS Safety Report 5628006-5 (Version None)
Quarter: 2008Q1

REPORT INFORMATION
  Report Type: 
  Country: None (occurrence: None)
  Receive Date: 20080215
  Receipt Date: 20080201
  Transmission Date: 20080703
  Serious: Yes (Other)
  Sender: FDA-Public Use
  Company Number: GB-RANBAXY-2008RR-12890

PATIENT

DRUGS (3)
  1. IBUPROFEN TABLETS BP 400MG [Suspect]
     Dosage: 400 MG, BID
     Dates: start: 20080108, end: 20080109
  2. LEMSIP [Concomitant]
     Route: 048
  3. ACETAMINOPHEN [Concomitant]
     Route: 048

REACTIONS (2)
  - EYE PAIN [None]
  - EYE SWELLING [None]
